FAERS Safety Report 7329225-2 (Version None)
Quarter: 2011Q1

REPORT INFORMATION
  Report Type: 
  Country: None (occurrence: None)
  Receive Date: 20110303
  Receipt Date: 20110228
  Transmission Date: 20110831
  Serious: Yes (Other)
  Sender: FDA-Public Use
  Company Number: A0915594A

PATIENT
  Sex: Male

DRUGS (1)
  1. ADVAIR DISKUS 100/50 [Suspect]
     Indication: ASTHMA
     Dosage: 2PUFF PER DAY
     Route: 055

REACTIONS (5)
  - HYPOAESTHESIA [None]
  - DYSPHONIA [None]
  - CARPAL TUNNEL SYNDROME [None]
  - DIABETIC RETINOPATHY [None]
  - DIABETES MELLITUS [None]
